FAERS Safety Report 11062049 (Version 1)
Quarter: 2015Q2

REPORT INFORMATION
  Report Type: Spontaneous
  Country: JP (occurrence: None)
  Receive Date: 20150422
  Receipt Date: 20150422
  Transmission Date: 20150821
  Serious: Yes (Life-Threatening)
  Sender: FDA-Public Use
  Company Number: PR 7937

PATIENT
  Age: 66 Year
  Sex: Female

DRUGS (10)
  1. LACTOSE [Concomitant]
     Active Substance: LACTOSE
  2. ZIOPTAN [Suspect]
     Active Substance: TAFLUPROST
     Indication: GLAUCOMA
     Dosage: 2 GTT, PER DAY
     Dates: start: 20131204
  3. NORVASC OD (AMLODIPINE BESYLATE) [Concomitant]
  4. FAMOTIDINE. [Concomitant]
     Active Substance: FAMOTIDINE
  5. TRILAFON (PERPHENAZINE) [Concomitant]
  6. SEPAZON (CLOXAZOLAM) [Concomitant]
  7. TASMOLIN (BIPERIDEN HYDROCHLORIDE) [Concomitant]
  8. HYALEIN (HYALURONATE SODIUM) [Concomitant]
  9. LOXONIN (LOXOPROFEN SODIUM) [Concomitant]
     Active Substance: LOXOPROFEN SODIUM
  10. MUCOSTA (REBAMIPIDE) [Concomitant]

REACTIONS (4)
  - Diarrhoea [None]
  - Blood pressure increased [None]
  - Conjunctivitis [None]
  - Hepatic cancer [None]

NARRATIVE: CASE EVENT DATE: 20140326
